FAERS Safety Report 14971811 (Version 2)
Quarter: 2018Q2

REPORT INFORMATION
  Report Type: Spontaneous
  Country: JP (occurrence: JP)
  Receive Date: 20180605
  Receipt Date: 20180618
  Transmission Date: 20180711
  Serious: Yes (Hospitalization)
  Sender: FDA-Public Use
  Company Number: JP-ROCHE-2048314

PATIENT
  Age: 84 Year
  Sex: Female
  Weight: 35 kg

DRUGS (5)
  1. GASTROM [Concomitant]
     Active Substance: ECABET SODIUM
     Indication: GASTRITIS EROSIVE
     Route: 065
     Dates: start: 20141112, end: 20160419
  2. BONVIVA [Suspect]
     Active Substance: IBANDRONATE SODIUM
     Indication: OSTEOPOROSIS
     Route: 042
     Dates: start: 20151024, end: 20170724
  3. REMINYL [Concomitant]
     Active Substance: GALANTAMINE
     Route: 065
     Dates: start: 20150709
  4. TAKEPRON [Concomitant]
     Active Substance: LANSOPRAZOLE
     Indication: GASTROOESOPHAGEAL REFLUX DISEASE
     Route: 065
     Dates: start: 20141112
  5. MOSAPRIDE [Concomitant]
     Active Substance: MOSAPRIDE
     Indication: ABDOMINAL DISTENSION
     Route: 048
     Dates: start: 20161006

REACTIONS (4)
  - Osteonecrosis of jaw [Recovered/Resolved with Sequelae]
  - Osteitis [Recovered/Resolved with Sequelae]
  - Constipation [Recovering/Resolving]
  - Abdominal distension [Recovering/Resolving]

NARRATIVE: CASE EVENT DATE: 201707
